FAERS Safety Report 19462130 (Version 3)
Quarter: 2021Q3

REPORT INFORMATION
  Report Type: Spontaneous
  Country: FR (occurrence: FR)
  Receive Date: 20210625
  Receipt Date: 20210803
  Transmission Date: 20211014
  Serious: No
  Sender: FDA-Public Use
  Company Number: FR-PFIZER INC-2021618232

PATIENT
  Age: 78 Year
  Sex: Male

DRUGS (1)
  1. NIVESTIM [Suspect]
     Active Substance: FILGRASTIM
     Dosage: UNK

REACTIONS (1)
  - Device mechanical issue [Unknown]
